FAERS Safety Report 6441170-3 (Version None)
Quarter: 2009Q4

REPORT INFORMATION
  Report Type: 
  Country: None (occurrence: None)
  Receive Date: 20091113
  Receipt Date: 20091113
  Transmission Date: 20100525
  Serious: No
  Sender: FDA-Public Use
  Company Number: None

PATIENT
  Age: 79 Year
  Sex: Male
  Weight: 88.4514 kg

DRUGS (1)
  1. CRESTOR [Suspect]
     Indication: DIABETES MELLITUS
     Dosage: 5MG ONCE A DAY BUCCAL
     Route: 002
     Dates: start: 20071001, end: 20081112

REACTIONS (5)
  - BOWEL MOVEMENT IRREGULARITY [None]
  - DECREASED ACTIVITY [None]
  - MUSCLE SPASMS [None]
  - MYALGIA [None]
  - PAIN IN EXTREMITY [None]
